FAERS Safety Report 6746899-5 (Version None)
Quarter: 2010Q2

REPORT INFORMATION
  Report Type: 
  Country: None (occurrence: None)
  Receive Date: 20100528
  Receipt Date: 20090713
  Transmission Date: 20101027
  Serious: No
  Sender: FDA-Public Use
  Company Number: US-ASTRAZENECA-2009SE22737

PATIENT
  Sex: Female

DRUGS (1)
  1. PRILOSEC OTC [Suspect]
     Dosage: 1 TABLET, 1 /DAY
     Route: 048

REACTIONS (5)
  - OEDEMA PERIPHERAL [None]
  - PAIN OF SKIN [None]
  - RASH [None]
  - SKIN IRRITATION [None]
  - VOMITING [None]
